FAERS Safety Report 10012013 (Version 1)
Quarter: 2014Q1

REPORT INFORMATION
  Report Type: Spontaneous
  Country: GB (occurrence: GB)
  Receive Date: 20140314
  Receipt Date: 20140314
  Transmission Date: 20141002
  Serious: Yes (Life-Threatening)
  Sender: FDA-Public Use
  Company Number: GB-WATSON-2014-04343

PATIENT
  Age: 72 Year
  Sex: Male
  Weight: 128 kg

DRUGS (4)
  1. AMOXICILLIN (UNKNOWN) [Suspect]
     Indication: GASTROINTESTINAL SURGERY
     Dosage: 1 G, UNKNOWN
     Route: 042
     Dates: start: 20140205
  2. METRONIDAZOLE (UNKNOWN) [Suspect]
     Indication: GASTROINTESTINAL SURGERY
     Dosage: 400 MG, UNKNOWN
     Route: 042
     Dates: start: 20140205
  3. ONDANSETRON HYDROCHLORIDE (UNKNOWN) [Suspect]
     Indication: GASTROINTESTINAL SURGERY
     Dosage: 4 MG, UNKNOWN
     Route: 042
     Dates: start: 20140205
  4. GENTAMICIN (UNKNOWN) [Suspect]
     Indication: GASTROINTESTINAL SURGERY
     Dosage: 520 MG, UNKNOWN
     Route: 042
     Dates: start: 20140205

REACTIONS (1)
  - Anaphylactic shock [Recovered/Resolved]
